FAERS Safety Report 8426838-1 (Version None)
Quarter: 2012Q2

REPORT INFORMATION
  Report Type: 
  Country: None (occurrence: None)
  Receive Date: 20120531
  Receipt Date: 20120523
  Transmission Date: 20120825
  Serious: Yes (Death)
  Sender: FDA-Public Use
  Company Number: B0804700A

PATIENT
  Sex: 0

DRUGS (3)
  1. MELPHALAN HYDROCHLORIDE [Suspect]
     Indication: NEUROBLASTOMA
  2. ETOPOSIDE [Suspect]
     Indication: NEUROBLASTOMA
  3. CARBOPLATIN [Suspect]
     Indication: NEUROBLASTOMA

REACTIONS (3)
  - RENAL FAILURE [None]
  - DIALYSIS [None]
  - FUNGAEMIA [None]
